FAERS Safety Report 23298370 (Version 1)
Quarter: 2023Q4

REPORT INFORMATION
  Report Type: Report from Study
  Country: US (occurrence: US)
  Receive Date: 20231214
  Receipt Date: 20231214
  Transmission Date: 20240110
  Serious: Yes (Other)
  Sender: FDA-Public Use
  Company Number: US-GILEAD-2023-0654697

PATIENT
  Sex: Female

DRUGS (9)
  1. AZTREONAM LYSINE [Suspect]
     Active Substance: AZTREONAM LYSINE
     Indication: Cystic fibrosis
     Dosage: 75 MG, TID, 28 DAYS ON 28 DAYS OFF
     Route: 065
  2. AZTREONAM LYSINE [Suspect]
     Active Substance: AZTREONAM LYSINE
     Indication: Pseudomonas infection
  3. METAMUCIL [Concomitant]
     Active Substance: PLANTAGO SEED
  4. ALBUTEROL [Concomitant]
     Active Substance: ALBUTEROL
  5. SODIUM CHLORIDE [Concomitant]
     Active Substance: SODIUM CHLORIDE
  6. MUCOMYST [Concomitant]
     Active Substance: ACETYLCYSTEINE
  7. ZITHROMAX [Concomitant]
     Active Substance: AZITHROMYCIN DIHYDRATE
  8. ACETYLCYSTEINE [Concomitant]
     Active Substance: ACETYLCYSTEINE
  9. VORICONAZOLE [Concomitant]
     Active Substance: VORICONAZOLE

REACTIONS (4)
  - Pneumonia bacterial [Unknown]
  - Sinusitis [Unknown]
  - Memory impairment [Unknown]
  - Product dose omission in error [Unknown]
